FAERS Safety Report 7824323-9 (Version None)
Quarter: 2011Q4

REPORT INFORMATION
  Report Type: 
  Country: None (occurrence: None)
  Receive Date: 20111018
  Receipt Date: 20111018
  Transmission Date: 20120403
  Serious: No
  Sender: FDA-Public Use
  Company Number: None

PATIENT
  Age: 52 Year
  Sex: Male
  Weight: 88 kg

DRUGS (4)
  1. METRONIDAZOLE [Suspect]
     Indication: CLOSTRIDIUM DIFFICILE COLITIS
     Dosage: 500 MG Q8 IV
     Route: 042
     Dates: start: 20110812, end: 20110821
  2. MYCAFUNGIN [Concomitant]
  3. FORTAZ [Concomitant]
  4. LINEZOLID [Concomitant]

REACTIONS (1)
  - PANCREATITIS [None]
